FAERS Safety Report 4917732-9 (Version None)
Quarter: 2006Q1

REPORT INFORMATION
  Report Type: 
  Country: None (occurrence: None)
  Receive Date: 20060221
  Receipt Date: 20051209
  Transmission Date: 20060701
  Serious: Yes (Other)
  Sender: FDA-Public Use
  Company Number: FR-BOEHRINGER INGELHEIM PHARMACEUTICALS, INC.-2005-BP-21569YA

PATIENT
  Sex: Male

DRUGS (3)
  1. TAMSULOSIN HCL [Suspect]
     Indication: BENIGN PROSTATIC HYPERPLASIA
     Route: 048
     Dates: start: 20040610, end: 20051128
  2. DUTASTERIDE [Suspect]
     Indication: BENIGN PROSTATIC HYPERPLASIA
     Dates: start: 20040610, end: 20051128
  3. PROPAFENONE HYDROCHLORIDE [Concomitant]

REACTIONS (7)
  - ANAEMIA [None]
  - APLASIA [None]
  - DYSPNOEA EXERTIONAL [None]
  - LEUKOPENIA [None]
  - MUCOSAL DISCOLOURATION [None]
  - MYELOID LEUKAEMIA [None]
  - THROMBOCYTOPENIA [None]
